FAERS Safety Report 6672567-4 (Version None)
Quarter: 2010Q2

REPORT INFORMATION
  Report Type: 
  Country: None (occurrence: None)
  Receive Date: 20100408
  Receipt Date: 20100331
  Transmission Date: 20101027
  Serious: Yes (Other)
  Sender: FDA-Public Use
  Company Number: US-BRISTOL-MYERS SQUIBB COMPANY-15045651

PATIENT
  Age: 70 Year
  Sex: Female

DRUGS (5)
  1. COUMADIN [Suspect]
     Dosage: 2007 TO MAR-2010, MAR-2010 TO ONGOING.
     Route: 048
     Dates: start: 20070101
  2. BETAPACE [Suspect]
     Indication: ATRIAL FIBRILLATION
  3. MULTAQ [Suspect]
     Indication: ATRIAL FIBRILLATION
     Dosage: 1DF = ONE HALF TABLET ONCE A DAY ON NOV09. DOSE INCREASED TO ONE TABLET (400 MG) BID ON 08MAR2010.
     Route: 048
     Dates: start: 20091101
  4. CARDIZEM [Concomitant]
     Indication: ATRIAL FIBRILLATION
     Dates: start: 20070101
  5. SYNTHROID [Concomitant]
     Dates: start: 20070101

REACTIONS (8)
  - ABDOMINAL DISCOMFORT [None]
  - ATRIAL FIBRILLATION [None]
  - BLOOD PRESSURE INCREASED [None]
  - COUGH [None]
  - DIARRHOEA [None]
  - EXTRASYSTOLES [None]
  - HAEMORRHAGE [None]
  - INTERNATIONAL NORMALISED RATIO INCREASED [None]
